FAERS Safety Report 12284486 (Version 1)
Quarter: 2016Q2

REPORT INFORMATION
  Report Type: Spontaneous
  Country: US (occurrence: US)
  Receive Date: 20160420
  Receipt Date: 20160420
  Transmission Date: 20160815
  Serious: Yes (Other)
  Sender: FDA-Public Use
  Company Number: US-ROCHE-1743841

PATIENT
  Age: 1 Year
  Sex: Female

DRUGS (1)
  1. TAMIFLU [Suspect]
     Active Substance: OSELTAMIVIR PHOSPHATE
     Indication: INFLUENZA
     Dosage: 5 ML BY MOUTH TWICE DAILY FOR 5 DAYS
     Route: 048
     Dates: start: 20160402, end: 20160402

REACTIONS (4)
  - Anger [Unknown]
  - Abnormal behaviour [Unknown]
  - Drug intolerance [Unknown]
  - Discomfort [Unknown]

NARRATIVE: CASE EVENT DATE: 20160402
